FAERS Safety Report 5950524-0 (Version None)
Quarter: 2008Q4

REPORT INFORMATION
  Report Type: 
  Country: None (occurrence: None)
  Receive Date: 20081022
  Receipt Date: 20080714
  Transmission Date: 20090506
  Serious: No
  Sender: FDA-Public Use
  Company Number: SPV1-2008-01508

PATIENT
  Age: 16 Year
  Sex: Female
  Weight: 43.5 kg

DRUGS (1)
  1. VYVANSE [Suspect]
     Indication: ATTENTION DEFICIT/HYPERACTIVITY DISORDER
     Dosage: 30 MG, 1X/DAY:QD, ORAL
     Route: 048
     Dates: start: 20070101, end: 20070101

REACTIONS (4)
  - DECREASED APPETITE [None]
  - FEELING ABNORMAL [None]
  - HEADACHE [None]
  - OFF LABEL USE [None]
